FAERS Safety Report 4562175-3 (Version None)
Quarter: 2005Q1

REPORT INFORMATION
  Report Type: 
  Country: None (occurrence: None)
  Receive Date: 20050121
  Receipt Date: 20041222
  Transmission Date: 20050727
  Serious: Yes (Other)
  Sender: FDA-Public Use
  Company Number: US_030695122

PATIENT
  Age: 25 Year
  Sex: Female
  Weight: 86 kg

DRUGS (9)
  1. ZYPREXA [Suspect]
     Indication: DEPRESSION
     Dosage: 20 MG/AT BEDTIME
     Dates: start: 19990614, end: 20010102
  2. ZYPREXA [Suspect]
     Indication: SCHIZOPHRENIA
     Dosage: 20 MG/AT BEDTIME
     Dates: start: 19990614, end: 20010102
  3. HALDOL [Concomitant]
  4. DEPAKOTE [Concomitant]
  5. SEROQUEL [Concomitant]
  6. LORAZEPAM [Concomitant]
  7. BENZTROPINE MESYLATE [Concomitant]
  8. NICOTINE DERMAL PATCH (NICOTINE RESIN) [Concomitant]
  9. TEMAZEPAM [Concomitant]

REACTIONS (25)
  - AGITATION [None]
  - AKINESIA [None]
  - COMA [None]
  - CONFUSIONAL STATE [None]
  - DELUSION [None]
  - DIABETES MELLITUS NON-INSULIN-DEPENDENT [None]
  - ENCEPHALOPATHY [None]
  - EYE PAIN [None]
  - HYPERKALAEMIA [None]
  - HYPERLIPIDAEMIA [None]
  - HYPERNATRAEMIA [None]
  - HYPERTENSION [None]
  - HYPOVOLAEMIA [None]
  - INSOMNIA [None]
  - LEUKOCYTOSIS [None]
  - OBESITY [None]
  - PARANOIA [None]
  - PROTEIN TOTAL INCREASED [None]
  - RENAL FAILURE ACUTE [None]
  - RESTLESSNESS [None]
  - RHABDOMYOLYSIS [None]
  - SINUS TACHYCARDIA [None]
  - SOCIAL AVOIDANT BEHAVIOUR [None]
  - TREATMENT NONCOMPLIANCE [None]
  - VOMITING [None]
